FAERS Safety Report 15606330 (Version 1)
Quarter: 2018Q4

REPORT INFORMATION
  Report Type: Spontaneous
  Country: DE (occurrence: DE)
  Receive Date: 20181112
  Receipt Date: 20181112
  Transmission Date: 20190205
  Serious: Yes (Hospitalization)
  Sender: FDA-Public Use
  Company Number: DE-ACCORD-091719

PATIENT
  Age: 64 Year
  Sex: Female

DRUGS (2)
  1. METHOTREXATE. [Suspect]
     Active Substance: METHOTREXATE
     Indication: PRODUCT USED FOR UNKNOWN INDICATION
     Dosage: NK MG, 1X / WEEK
  2. FOLIC ACID. [Concomitant]
     Active Substance: FOLIC ACID
     Dosage: NK MG, 24 H LATER

REACTIONS (7)
  - Abdominal pain upper [Unknown]
  - Paraesthesia [Unknown]
  - Vomiting [Unknown]
  - Urinary incontinence [Unknown]
  - Hypersensitivity [Unknown]
  - Anal incontinence [Unknown]
  - Headache [Unknown]
